FAERS Safety Report 5356502-7 (Version None)
Quarter: 2007Q2

REPORT INFORMATION
  Report Type: 
  Country: None (occurrence: None)
  Receive Date: 20070530
  Receipt Date: 20061221
  Transmission Date: 20071010
  Serious: Yes (Hospitalization)
  Sender: FDA-Public Use
  Company Number: US200608005524

PATIENT
  Age: 37 Year
  Sex: Male
  Weight: 83.9 kg

DRUGS (7)
  1. ZYPREXA [Suspect]
     Indication: DEPRESSION
     Dosage: 5 MG
     Dates: start: 19990101, end: 20010101
  2. ZYPREXA [Suspect]
     Indication: DEPRESSION
     Dosage: 5 MG
     Dates: start: 20030101
  3. PROZAC [Concomitant]
  4. RISPERDAL /SWE/ (RISPERIDONE) [Concomitant]
  5. DEPAKOTE [Concomitant]
  6. LITHIUM CARBONATE [Concomitant]
  7. WELLBUTRIN [Concomitant]

REACTIONS (2)
  - CHEST PAIN [None]
  - DIABETES MELLITUS [None]
